FAERS Safety Report 8010733-6 (Version None)
Quarter: 2011Q4

REPORT INFORMATION
  Report Type: 
  Country: None (occurrence: None)
  Receive Date: 20111228
  Receipt Date: 20111220
  Transmission Date: 20120403
  Serious: Yes (Other)
  Sender: FDA-Public Use
  Company Number: CN-PFIZER INC-2011309469

PATIENT

DRUGS (1)
  1. TYGACIL [Suspect]

REACTIONS (1)
  - RENAL FAILURE [None]
